FAERS Safety Report 5866509-9 (Version None)
Quarter: 2008Q3

REPORT INFORMATION
  Report Type: 
  Country: None (occurrence: None)
  Receive Date: 20080902
  Receipt Date: 20080902
  Transmission Date: 20090109
  Serious: Yes (Death, Other)
  Sender: FDA-Public Use
  Company Number: PHEH1996US09415

PATIENT
  Sex: Male
  Weight: 77 kg

DRUGS (14)
  1. NEORAL [Suspect]
     Route: 048
     Dates: start: 19951114
  2. NEORAL [Suspect]
     Route: 048
     Dates: end: 19961109
  3. CELLCEPT [Concomitant]
  4. PREDNISONE TAB [Concomitant]
  5. BUMEX [Concomitant]
  6. COUMADIN [Concomitant]
  7. DILTIAZEM HCL [Concomitant]
  8. MYCOSTATIN [Concomitant]
  9. PEPCID [Concomitant]
  10. BACTRIM [Concomitant]
  11. LOPID [Concomitant]
  12. THEO-DUR [Concomitant]
  13. SLOW-K [Concomitant]
  14. MAGNESIUM SULFATE [Concomitant]

REACTIONS (2)
  - DEATH [None]
  - MALIGNANT MELANOMA [None]
